FAERS Safety Report 7161520-2 (Version None)
Quarter: 2010Q4

REPORT INFORMATION
  Report Type: 
  Country: None (occurrence: None)
  Receive Date: 20101215
  Receipt Date: 20101212
  Transmission Date: 20110411
  Serious: Yes (Other)
  Sender: FDA-Public Use
  Company Number: US-PFIZER INC-2010169527

PATIENT
  Sex: Male

DRUGS (3)
  1. VIAGRA [Suspect]
     Dosage: 600 MG, UNK
     Route: 048
     Dates: start: 20101210
  2. ADVIL [Concomitant]
     Dosage: UNK
  3. IDARUBICIN [Concomitant]
     Dosage: UNK

REACTIONS (2)
  - ERECTION INCREASED [None]
  - INCORRECT DOSE ADMINISTERED [None]
